FAERS Safety Report 5636857-6 (Version None)
Quarter: 2008Q2

REPORT INFORMATION
  Report Type: 
  Country: None (occurrence: None)
  Receive Date: 20080225
  Receipt Date: 20080213
  Transmission Date: 20081010
  Serious: Yes (Hospitalization)
  Sender: FDA-Public Use
  Company Number: DE-WYE-H02674108

PATIENT
  Sex: Male

DRUGS (90)
  1. PANTOPRAZOLE SODIUM [Suspect]
     Route: 042
     Dates: start: 20070815, end: 20070901
  2. NOVALGIN [Suspect]
     Route: 042
     Dates: start: 20070725, end: 20070725
  3. NOVALGIN [Suspect]
     Route: 042
     Dates: start: 20070807, end: 20070807
  4. ACIMETHIN [Suspect]
     Route: 048
     Dates: start: 20070810, end: 20070820
  5. CLAFORAN [Suspect]
     Route: 042
     Dates: start: 20070811, end: 20070831
  6. DIBLOCIN [Suspect]
     Route: 048
     Dates: start: 20070812, end: 20070824
  7. KONAKION [Concomitant]
     Route: 048
     Dates: start: 20070725, end: 20070725
  8. HEPARIN [Concomitant]
     Route: 042
     Dates: start: 20070725, end: 20070725
  9. ALLOPURINOL [Concomitant]
     Route: 048
     Dates: start: 20030101, end: 20070831
  10. FURORESE [Concomitant]
     Route: 048
     Dates: start: 19980201, end: 20070725
  11. ASPIRIN [Concomitant]
     Route: 048
     Dates: start: 19980201
  12. PLAVIX [Concomitant]
     Route: 048
     Dates: start: 20070201
  13. BELOC ZOK [Concomitant]
     Route: 048
     Dates: start: 19980824, end: 20070809
  14. BELOC ZOK [Concomitant]
     Route: 048
     Dates: start: 20070810
  15. FELODIPINE [Concomitant]
     Route: 048
     Dates: start: 20070301
  16. FELODIPINE [Concomitant]
     Route: 048
     Dates: start: 20070724, end: 20070805
  17. FELODIPINE [Concomitant]
     Dosage: 5 MG, FREQUENCY UNKNOWN
     Route: 048
     Dates: start: 20070806, end: 20070806
  18. FELODIPINE [Concomitant]
     Route: 048
     Dates: start: 20070807, end: 20070901
  19. FELODIPINE [Concomitant]
     Route: 048
     Dates: start: 20070906
  20. SIMVASTATIN [Concomitant]
     Route: 048
     Dates: start: 20050901, end: 20070724
  21. SIMVASTATIN [Concomitant]
     Route: 048
     Dates: start: 20070725, end: 20070831
  22. SIMVASTATIN [Concomitant]
     Route: 048
     Dates: start: 20070907
  23. DORMICUM ^ROCHE^ [Concomitant]
     Route: 042
     Dates: start: 20070725, end: 20070725
  24. MIDAZOLAM HCL [Concomitant]
     Route: 042
     Dates: start: 20070815, end: 20070815
  25. FLUMAZENIL [Concomitant]
     Route: 042
     Dates: start: 20070725, end: 20070725
  26. ALNA [Concomitant]
     Route: 048
     Dates: start: 20070725, end: 20070901
  27. ALNA [Concomitant]
     Route: 048
     Dates: start: 20070905
  28. LASIX [Concomitant]
     Route: 048
     Dates: start: 20070725, end: 20070901
  29. LASIX [Concomitant]
     Route: 048
     Dates: start: 20070905
  30. OMNIFLORA [Concomitant]
     Route: 048
     Dates: start: 20070728, end: 20070820
  31. OMNIFLORA [Concomitant]
     Route: 048
     Dates: start: 20070821, end: 20070821
  32. VANCOMYCIN [Concomitant]
     Route: 042
     Dates: start: 20070725, end: 20070727
  33. RIFAMPICIN [Concomitant]
     Route: 042
     Dates: start: 20070725, end: 20070726
  34. RIFAMPICIN [Concomitant]
     Route: 042
     Dates: start: 20070727, end: 20070810
  35. FRAGMIN [Concomitant]
     Dosage: DOSE FORM AND FREQUENCY NOT SPECIFIED
     Route: 058
     Dates: start: 20070725, end: 20070727
  36. FRAGMIN [Concomitant]
     Dosage: DOSE FORM AND FREQUENCY NOT SPECIFIED
     Route: 058
     Dates: start: 20070802
  37. FRAXIPARIN [Concomitant]
     Route: 058
     Dates: start: 20070727, end: 20070730
  38. FRAXIPARIN [Concomitant]
     Route: 058
     Dates: start: 20070731, end: 20070801
  39. CIPRO [Concomitant]
     Route: 042
     Dates: start: 20070806, end: 20070808
  40. LASIX [Concomitant]
     Route: 065
     Dates: start: 20070806, end: 20070806
  41. TRAMAL [Concomitant]
     Route: 065
     Dates: start: 20070807, end: 20070808
  42. SPASMEX [Concomitant]
     Route: 058
     Dates: start: 20070807, end: 20070817
  43. SPASMEX [Concomitant]
     Route: 058
     Dates: start: 20070818, end: 20070820
  44. SPASMEX [Concomitant]
     Route: 058
     Dates: start: 20070821, end: 20070821
  45. ZOFRAN [Concomitant]
     Dosage: 8 MG, FREQUENCY NOT SPECIFIED
     Route: 042
     Dates: start: 20070807, end: 20070807
  46. ZOFRAN [Concomitant]
     Dosage: 4 MG X 1 DOSE
     Route: 042
     Dates: start: 20070807, end: 20070807
  47. ZOFRAN [Concomitant]
     Dosage: 8 MG, FREQUENCY NOT SPECIFIED
     Route: 042
     Dates: start: 20070807, end: 20070808
  48. ZOFRAN [Concomitant]
     Dosage: 4 MG X 1 DOSE
     Route: 065
     Dates: start: 20070810, end: 20070810
  49. BUSCOPAN [Concomitant]
     Route: 042
     Dates: start: 20070807, end: 20070807
  50. PERFALGAN [Concomitant]
     Dosage: DOSE FORM AND FREQUENCY NOT SPECIFIED
     Route: 042
     Dates: start: 20070807, end: 20070807
  51. DIPIDOLOR [Concomitant]
     Route: 042
     Dates: start: 20070807, end: 20070807
  52. DIPIDOLOR [Concomitant]
     Route: 058
     Dates: start: 20070807, end: 20070807
  53. ACETAMINOPHEN [Concomitant]
     Dosage: DOSE FORM AND FREQUENCY NOT SPECIFIED
     Route: 048
     Dates: start: 20070806, end: 20070807
  54. XIMOVAN [Concomitant]
     Route: 048
     Dates: start: 20070806
  55. XIMOVAN [Concomitant]
     Route: 048
     Dates: start: 20070808, end: 20070823
  56. XIMOVAN [Concomitant]
     Route: 048
     Dates: start: 20070826, end: 20070827
  57. XIMOVAN [Concomitant]
     Route: 048
     Dates: start: 20070829, end: 20070829
  58. XIMOVAN [Concomitant]
     Route: 048
     Dates: start: 20070908, end: 20070909
  59. XIMOVAN [Concomitant]
     Route: 048
     Dates: start: 20071111, end: 20071111
  60. LEFAX [Concomitant]
     Route: 048
     Dates: start: 20070806
  61. BELOC [Concomitant]
     Dosage: DOSE FORM AND FREQUENCY NOT SPECIFIED
     Route: 065
     Dates: start: 20070810, end: 20070810
  62. KALINOR [Concomitant]
     Route: 048
     Dates: start: 20070812, end: 20070821
  63. METOCLOPRAMIDE HYDROCHLORIDE [Concomitant]
     Route: 048
     Dates: start: 20070809, end: 20070816
  64. BENZYLPENICILLIN SODIUM [Concomitant]
     Route: 042
     Dates: start: 20070811, end: 20070901
  65. ROCEPHIN [Concomitant]
     Route: 042
     Dates: start: 20070808, end: 20070810
  66. ACETYLCYSTEINE [Concomitant]
     Route: 065
     Dates: start: 20070817, end: 20070903
  67. RED BLOOD CELLS [Concomitant]
     Route: 042
     Dates: start: 20070814, end: 20070814
  68. INFLUENZA VIRUS VACCINE POLYVALENT [Concomitant]
     Dosage: DOSE FORM
     Route: 065
     Dates: start: 20061001, end: 20061001
  69. MARCUMAR [Concomitant]
     Dosage: 1.5 MG, FREQUENCY NOT SPECIFIED
     Route: 048
     Dates: start: 20001001, end: 20070716
  70. MARCUMAR [Concomitant]
     Route: 048
     Dates: start: 20070719, end: 20070719
  71. MARCUMAR [Concomitant]
     Route: 048
     Dates: start: 20070720, end: 20070721
  72. MARCUMAR [Concomitant]
     Route: 048
     Dates: start: 20070722, end: 20070725
  73. METOPROLOL SUCCINATE [Concomitant]
     Dosage: DOSE FORM AND FREQUENCY NOT SPECIFIED
     Route: 048
     Dates: start: 20060401, end: 20070724
  74. RAMIPRIL [Concomitant]
     Route: 048
     Dates: start: 20021001, end: 20070323
  75. MAGNESIUM VERLA DRAGEES [Concomitant]
     Route: 048
     Dates: start: 19981001, end: 20070724
  76. CLEXANE [Concomitant]
     Dosage: DOSE FORM AND FREQUENCY NOT SPECIFIED
     Route: 058
  77. ATORVASTATIN CALCIUM [Concomitant]
     Route: 048
     Dates: end: 20050101
  78. CALCIUM CHLORIDE HEXAHYDRATE [Concomitant]
     Route: 042
     Dates: start: 20070725, end: 20070725
  79. CALCIUM CHLORIDE HEXAHYDRATE [Concomitant]
     Route: 042
     Dates: start: 20070817, end: 20070903
  80. MAGNESIUM CHLORIDE ANHYDROUS [Concomitant]
     Route: 042
     Dates: start: 20070725, end: 20070725
  81. MAGNESIUM CHLORIDE ANHYDROUS [Concomitant]
     Route: 042
     Dates: start: 20070817, end: 20070903
  82. POTASSIUM CHLORIDE [Concomitant]
     Route: 042
     Dates: start: 20070725, end: 20070725
  83. POTASSIUM CHLORIDE [Concomitant]
     Route: 042
     Dates: start: 20070817, end: 20070903
  84. SODIUM ACETATE [Concomitant]
     Route: 042
     Dates: start: 20070725, end: 20070725
  85. SODIUM ACETATE [Concomitant]
     Route: 042
     Dates: start: 20070817, end: 20070903
  86. SODIUM CHLORIDE INJ [Concomitant]
     Route: 042
     Dates: start: 20070725, end: 20070725
  87. SODIUM CHLORIDE INJ [Concomitant]
     Route: 042
     Dates: start: 20070817, end: 20070903
  88. NOVALGIN [Suspect]
     Route: 048
     Dates: start: 20070807, end: 20070816
  89. NOVALGIN [Suspect]
     Route: 048
     Dates: start: 20070809, end: 20070816
  90. NOVALGIN [Suspect]
     Dosage: 40 GTT, FREQUENCY NOT SPECIFIED
     Route: 048
     Dates: start: 20070808, end: 20070808

REACTIONS (1)
  - AGRANULOCYTOSIS [None]
